FAERS Safety Report 18285821 (Version 1)
Quarter: 2020Q3

REPORT INFORMATION
  Report Type: Spontaneous
  Country: US (occurrence: US)
  Receive Date: 20200919
  Receipt Date: 20200919
  Transmission Date: 20201103
  Serious: No
  Sender: FDA-Public Use
  Company Number: US-009507513-2009USA004991

PATIENT
  Age: 72 Year
  Sex: Female

DRUGS (2)
  1. NOXAFIL [Suspect]
     Active Substance: POSACONAZOLE
     Dosage: 200 MILLIGRAM
  2. NOXAFIL [Suspect]
     Active Substance: POSACONAZOLE
     Indication: EVIDENCE BASED TREATMENT
     Dosage: 300 MILLIGRAM

REACTIONS (2)
  - Product use in unapproved indication [Unknown]
  - Pseudoaldosteronism [Unknown]
